FAERS Safety Report 8155481-7 (Version None)
Quarter: 2012Q1

REPORT INFORMATION
  Report Type: 
  Country: None (occurrence: None)
  Receive Date: 20120222
  Receipt Date: 20120213
  Transmission Date: 20120608
  Serious: Yes (Hospitalization, Other)
  Sender: FDA-Public Use
  Company Number: DE-ELI_LILLY_AND_COMPANY-DE201202003219

PATIENT
  Age: 78 Year
  Sex: Female

DRUGS (2)
  1. FORTEO [Suspect]
     Indication: OSTEOPOROSIS
     Dosage: UNK UNK, QD
     Route: 058
     Dates: start: 20110715
  2. CALCIUM W/VITAMIN D NOS [Concomitant]
     Dosage: UNK, BID

REACTIONS (2)
  - FEMORAL NECK FRACTURE [None]
  - FALL [None]
